FAERS Safety Report 8565029-0 (Version None)
Quarter: 2012Q3

REPORT INFORMATION
  Report Type: 
  Country: None (occurrence: None)
  Receive Date: 20120803
  Receipt Date: 20080428
  Transmission Date: 20120928
  Serious: Yes (Other)
  Sender: FDA-Public Use
  Company Number: CO-PFIZER INC-2012188211

PATIENT
  Age: 62 Year
  Sex: Female

DRUGS (3)
  1. OLMESARTAN MEDOXOMIL AND HYDROCHLOROTHIZIDE [Suspect]
     Indication: HYPERTENSION
     Dosage: [OLMESARTAN MEDOXOMIL 20 MG]/ [HYDROCHLOROTHIAZIDE 12.5MG] ONCE DAILY
  2. LIPITOR [Suspect]
     Indication: DYSLIPIDAEMIA
     Dosage: 10 MG, ONCE DAILY
  3. ACETYLSALICYLIC ACID [Concomitant]
     Dosage: 100 MG, ONCE DAILY

REACTIONS (3)
  - CEREBROVASCULAR DISORDER [None]
  - DIZZINESS [None]
  - TOBACCO ABUSE [None]
